FAERS Safety Report 7562846-0 (Version None)
Quarter: 2011Q2

REPORT INFORMATION
  Report Type: 
  Country: None (occurrence: None)
  Receive Date: 20110615
  Receipt Date: 20110603
  Transmission Date: 20111010
  Serious: Yes (Hospitalization, Other)
  Sender: FDA-Public Use
  Company Number: JPI-P-012125

PATIENT
  Age: 36 Year
  Sex: Female
  Weight: 108.8633 kg

DRUGS (14)
  1. ESOMEPRAZOLE MAGNESIUM [Concomitant]
  2. IMIPRAMINE [Concomitant]
  3. TOPIRAMATE [Concomitant]
  4. LISINOPRIL [Concomitant]
  5. AZELASTINE HCL [Concomitant]
  6. DIVALPROEX SODIUM [Concomitant]
  7. XYREM [Suspect]
  8. METHYLPHENIDATE [Concomitant]
  9. XYREM [Suspect]
     Indication: CATAPLEXY
     Dosage: SEE IMAGE
     Route: 048
     Dates: end: 20101105
  10. XYREM [Suspect]
     Indication: CATAPLEXY
     Dosage: SEE IMAGE
     Route: 048
     Dates: start: 20101106
  11. XYREM [Suspect]
     Indication: CATAPLEXY
     Dosage: SEE IMAGE
     Route: 048
     Dates: start: 20050908
  12. ATENOLOL [Concomitant]
  13. VENLAFAXINE [Concomitant]
  14. SIMVASTATIN [Concomitant]

REACTIONS (8)
  - DIABETES MELLITUS [None]
  - CATAPLEXY [None]
  - INTRACRANIAL VENOUS SINUS THROMBOSIS [None]
  - BIPOLAR DISORDER [None]
  - THERAPEUTIC RESPONSE DECREASED [None]
  - CEREBROVASCULAR ACCIDENT [None]
  - THROMBOSIS [None]
  - POLYCYSTIC OVARIES [None]
